FAERS Safety Report 11596445 (Version 2)
Quarter: 2015Q4

REPORT INFORMATION
  Report Type: Spontaneous
  Country: KE (occurrence: KE)
  Receive Date: 20151006
  Receipt Date: 20151127
  Transmission Date: 20160304
  Serious: Yes (Death)
  Sender: FDA-Public Use
  Company Number: NG-009507513-1510NGA000362

PATIENT
  Age: 43 Year
  Sex: Female

DRUGS (3)
  1. TIENAM INJECTION [Suspect]
     Active Substance: CILASTATIN SODIUM\IMIPENEM
     Indication: PNEUMONIA
     Dosage: UNK
     Route: 042
  2. ZITHROMAX [Concomitant]
     Active Substance: AZITHROMYCIN DIHYDRATE
  3. TAZOCIN [Suspect]
     Active Substance: PIPERACILLIN SODIUM\TAZOBACTAM SODIUM

REACTIONS (5)
  - Wrong drug administered [Unknown]
  - Treatment failure [Fatal]
  - Infection [Fatal]
  - Multiple-drug resistance [None]
  - Ill-defined disorder [None]
